FAERS Safety Report 8307642-1 (Version None)
Quarter: 2012Q2

REPORT INFORMATION
  Report Type: 
  Country: None (occurrence: None)
  Receive Date: 20120424
  Receipt Date: 20120416
  Transmission Date: 20120825
  Serious: Yes (Hospitalization, Other)
  Sender: FDA-Public Use
  Company Number: US-CELGENEUS-163-21880-12040110

PATIENT
  Sex: Female

DRUGS (4)
  1. BONIVA [Concomitant]
     Indication: OSTEOPOROSIS
     Dosage: 1 TABLET
     Route: 048
  2. FERROUS SULFATE TAB [Concomitant]
     Indication: CONSTIPATION
     Dosage: 325 MILLIGRAM
     Route: 048
  3. REVLIMID [Suspect]
     Dosage: 5 MILLIGRAM
     Route: 048
     Dates: start: 20120224, end: 20120316
  4. PROCRIT [Concomitant]
     Route: 065
     Dates: start: 20090819

REACTIONS (2)
  - PANCYTOPENIA [None]
  - SICK SINUS SYNDROME [None]
